FAERS Safety Report 7996300-9 (Version None)
Quarter: 2011Q4

REPORT INFORMATION
  Report Type: 
  Country: None (occurrence: None)
  Receive Date: 20111220
  Receipt Date: 20111219
  Transmission Date: 20120403
  Serious: Yes (Hospitalization)
  Sender: FDA-Public Use
  Company Number: JP-ABBOTT-11P-087-0883505-00

PATIENT
  Sex: Male

DRUGS (5)
  1. EXPECTORANT [Concomitant]
     Indication: PRODUCT USED FOR UNKNOWN INDICATION
  2. STOMACH MEDICINE [Concomitant]
     Indication: PRODUCT USED FOR UNKNOWN INDICATION
  3. MANIDIPINE HYDROCHLORIDE [Concomitant]
     Indication: PRODUCT USED FOR UNKNOWN INDICATION
  4. CLARITHROMYCIN [Suspect]
     Indication: BRONCHIECTASIS
     Route: 048
     Dates: start: 20111114, end: 20111212
  5. CANDESARTAN CILEXETIL [Concomitant]
     Indication: PRODUCT USED FOR UNKNOWN INDICATION

REACTIONS (2)
  - SYNCOPE [None]
  - LOSS OF CONSCIOUSNESS [None]
